FAERS Safety Report 23241254 (Version 3)
Quarter: 2024Q4

REPORT INFORMATION
  Report Type: Spontaneous
  Country: US (occurrence: US)
  Receive Date: 20231129
  Receipt Date: 20241210
  Transmission Date: 20250115
  Serious: Yes (Other)
  Sender: PFIZER
  Company Number: US-PFIZER INC-2020040041

PATIENT
  Age: 74 Year
  Sex: Female
  Weight: 73.94 kg

DRUGS (1)
  1. XELJANZ XR [Suspect]
     Active Substance: TOFACITINIB CITRATE
     Indication: Rheumatoid arthritis
     Dosage: 11 MG, DAILY
     Route: 048
     Dates: end: 202408

REACTIONS (5)
  - Cataract [Unknown]
  - Macular degeneration [Unknown]
  - Neoplasm malignant [Unknown]
  - Intentional product misuse [Unknown]
  - Body height decreased [Unknown]

NARRATIVE: CASE EVENT DATE: 20240801
